FAERS Safety Report 14538766 (Version 3)
Quarter: 2018Q2

REPORT INFORMATION
  Report Type: Report from Study
  Country: US (occurrence: US)
  Receive Date: 20180216
  Receipt Date: 20180419
  Transmission Date: 20180711
  Serious: Yes (Hospitalization)
  Sender: FDA-Public Use
  Company Number: US-BRISTOL-MYERS SQUIBB COMPANY-BMS-2018-012343

PATIENT
  Age: 41 Year
  Sex: Male
  Weight: 124.1 kg

DRUGS (2)
  1. NIVOLUMAB [Suspect]
     Active Substance: NIVOLUMAB
     Indication: TESTIS CANCER
     Dosage: 240 MG, Q2WK
     Route: 042
     Dates: start: 20180105, end: 20180105
  2. IPILIMUMAB [Suspect]
     Active Substance: IPILIMUMAB
     Indication: TESTIS CANCER
     Dosage: 124.1 MG, UNK
     Route: 042
     Dates: start: 20180105, end: 20180105

REACTIONS (2)
  - Pain in extremity [Recovering/Resolving]
  - Upper respiratory tract infection [Recovering/Resolving]

NARRATIVE: CASE EVENT DATE: 20180115
